FAERS Safety Report 18180843 (Version 1)
Quarter: 2020Q3

REPORT INFORMATION
  Report Type: Spontaneous
  Country: FR (occurrence: FR)
  Receive Date: 20200821
  Receipt Date: 20200821
  Transmission Date: 20201103
  Serious: Yes (Hospitalization, Other)
  Sender: FDA-Public Use
  Company Number: FR-CASPER PHARMA LLC-2020CAS000413

PATIENT
  Age: 55 Year
  Sex: Male

DRUGS (2)
  1. AZATHIOPRINE. [Suspect]
     Active Substance: AZATHIOPRINE
     Indication: PROCTITIS
     Dosage: 100 MILLIGRAM, QD
     Route: 065
  2. SULFASALAZINE. [Concomitant]
     Active Substance: SULFASALAZINE
     Indication: PROCTITIS
     Dosage: 2 GRAM, QD
     Route: 065

REACTIONS (2)
  - Portal hypertension [Unknown]
  - Nodular regenerative hyperplasia [Unknown]
